FAERS Safety Report 4665593-8 (Version None)
Quarter: 2005Q2

REPORT INFORMATION
  Report Type: 
  Country: None (occurrence: None)
  Receive Date: 20050517
  Receipt Date: 20050317
  Transmission Date: 20051028
  Serious: No
  Sender: FDA-Public Use
  Company Number: S05-USA-01544-01

PATIENT
  Age: 86 Year
  Sex: Female

DRUGS (10)
  1. NAMENDA [Suspect]
     Indication: DEMENTIA ALZHEIMER'S TYPE
     Dates: start: 20050315
  2. ARICEPT [Concomitant]
  3. ZYPREXA [Concomitant]
  4. DETROL [Concomitant]
  5. DIOVAN HCT [Concomitant]
  6. DILTIAZEM [Concomitant]
  7. CALCIUM GLUCONATE [Concomitant]
  8. VITAMIN A [Concomitant]
  9. VITAMIN D [Concomitant]
  10. ASCORBIC ACID [Concomitant]

REACTIONS (1)
  - HYPERSOMNIA [None]
